FAERS Safety Report 5103806-9 (Version None)
Quarter: 2006Q3

REPORT INFORMATION
  Report Type: 
  Country: None (occurrence: None)
  Receive Date: 20060913
  Receipt Date: 20060906
  Transmission Date: 20061208
  Serious: Yes (Other)
  Sender: FDA-Public Use
  Company Number: US-ROCHE-462460

PATIENT
  Age: 69 Year
  Sex: Male
  Weight: 78.9 kg

DRUGS (2)
  1. KLONOPIN [Suspect]
     Indication: MENIERE'S DISEASE
     Dosage: DOSE REPORTED AS DAILY AT BED.
     Route: 048
     Dates: start: 19860615
  2. SYNTHROID [Concomitant]
     Indication: HYPOTHYROIDISM
     Dosage: DOSE REPORTED AS DAILY.
     Route: 048

REACTIONS (3)
  - CONVULSION [None]
  - DIZZINESS [None]
  - MUSCLE TWITCHING [None]
